FAERS Safety Report 9742157 (Version 2)
Quarter: 2013Q4

REPORT INFORMATION
  Report Type: Spontaneous
  Country: TR (occurrence: TR)
  Receive Date: 20131210
  Receipt Date: 20131217
  Transmission Date: 20140711
  Serious: Yes (Hospitalization)
  Sender: FDA-Public Use
  Company Number: PHHY2013TR143664

PATIENT
  Age: 13 Year
  Sex: Male
  Weight: 54 kg

DRUGS (6)
  1. METHYLPHENIDATE [Suspect]
     Indication: ATTENTION DEFICIT/HYPERACTIVITY DISORDER
     Dosage: 1350 MG, UNK
  2. METHYLPHENIDATE [Suspect]
     Dosage: 27 MG, DAILY
  3. RISPERIDONE [Concomitant]
     Indication: PSYCHOMOTOR HYPERACTIVITY
  4. RISPERIDONE [Concomitant]
     Indication: IMPULSIVE BEHAVIOUR
  5. RISPERIDONE [Concomitant]
     Indication: ATTENTION DEFICIT/HYPERACTIVITY DISORDER
  6. SERTRALINE [Concomitant]
     Indication: DEPRESSED MOOD

REACTIONS (18)
  - Suicide attempt [Recovered/Resolved]
  - Feeling abnormal [Recovered/Resolved]
  - Sympathomimetic effect [Unknown]
  - Vomiting [Recovered/Resolved]
  - Palpitations [Recovered/Resolved]
  - Somnolence [Recovered/Resolved]
  - Agitation [Recovered/Resolved]
  - Restlessness [Recovered/Resolved]
  - Salivary hypersecretion [Recovered/Resolved]
  - Nervousness [Recovered/Resolved]
  - Logorrhoea [Recovered/Resolved]
  - Hyperkinesia [Recovered/Resolved]
  - Heart rate increased [Unknown]
  - Dyskinesia [Unknown]
  - General physical condition abnormal [Unknown]
  - Abnormal behaviour [Unknown]
  - Disturbance in attention [Unknown]
  - Overdose [Unknown]
